FAERS Safety Report 5149382-6 (Version None)
Quarter: 2006Q4

REPORT INFORMATION
  Report Type: 
  Country: None (occurrence: None)
  Receive Date: 20061113
  Receipt Date: 20051208
  Transmission Date: 20070319
  Serious: No
  Sender: FDA-Public Use
  Company Number: 430011

PATIENT
  Age: 83 Year
  Sex: Female

DRUGS (8)
  1. COREG [Suspect]
     Dosage: 25MG TWICE PER DAY
     Route: 048
     Dates: start: 20051101
  2. ALDACTONE [Concomitant]
  3. ASPIRIN [Concomitant]
  4. LASIX [Concomitant]
  5. ZAROXOLYN [Concomitant]
  6. BENICAR [Concomitant]
  7. UNKNOWN MEDICATION [Concomitant]
     Route: 065
  8. CRESTOR [Concomitant]

REACTIONS (5)
  - ASTHENIA [None]
  - MUSCULOSKELETAL PAIN [None]
  - NECK PAIN [None]
  - SENSATION OF HEAVINESS [None]
  - SLEEP DISORDER [None]
